FAERS Safety Report 12929915 (Version 1)
Quarter: 2016Q4

REPORT INFORMATION
  Report Type: Spontaneous
  Country: US (occurrence: US)
  Receive Date: 20161111
  Receipt Date: 20161111
  Transmission Date: 20170207
  Serious: Yes (Hospitalization, Other)
  Sender: FDA-Public Use
  Company Number: None

PATIENT
  Age: 23 Year
  Sex: Female
  Weight: 65.77 kg

DRUGS (1)
  1. MIRENA [Suspect]
     Active Substance: LEVONORGESTREL

REACTIONS (6)
  - Maternal exposure during pregnancy [None]
  - Caesarean section [None]
  - Abortion spontaneous [None]
  - Device dislocation [None]
  - Pregnancy with contraceptive device [None]
  - Haemorrhage [None]

NARRATIVE: CASE EVENT DATE: 20161024
